FAERS Safety Report 10922309 (Version 1)
Quarter: 2015Q1

REPORT INFORMATION
  Report Type: Spontaneous
  Country: AU (occurrence: AU)
  Receive Date: 20150317
  Receipt Date: 20150317
  Transmission Date: 20150721
  Serious: Yes (Other)
  Sender: FDA-Public Use
  Company Number: AU-BAYER-2015-036726

PATIENT
  Age: 36 Year
  Sex: Female

DRUGS (1)
  1. YAZ [Suspect]
     Active Substance: DROSPIRENONE\ETHINYL ESTRADIOL
     Dosage: 1 DF, OM
     Route: 048
     Dates: start: 20150304

REACTIONS (6)
  - Headache [None]
  - Fatigue [None]
  - Palpitations [None]
  - Headache [None]
  - Menstrual disorder [None]
  - Dyspnoea [None]

NARRATIVE: CASE EVENT DATE: 20150307
